FAERS Safety Report 6839383-1 (Version None)
Quarter: 2010Q2

REPORT INFORMATION
  Report Type: 
  Country: None (occurrence: None)
  Receive Date: 20100629
  Receipt Date: 20100430
  Transmission Date: 20101027
  Serious: No
  Sender: FDA-Public Use
  Company Number: US-WYE-H14930310

PATIENT
  Sex: Female
  Weight: 59.02 kg

DRUGS (3)
  1. PRISTIQ [Suspect]
     Indication: DEPRESSION
     Dosage: 50 MG  1X PER 1 DAY, ORAL
     Route: 048
     Dates: start: 20090501
  2. LORAZEPAM [Concomitant]
  3. TRAZODONE HCL [Concomitant]

REACTIONS (2)
  - RESTLESS LEGS SYNDROME [None]
  - RESTLESSNESS [None]
